FAERS Safety Report 8285293-5 (Version None)
Quarter: 2012Q2

REPORT INFORMATION
  Report Type: 
  Country: None (occurrence: None)
  Receive Date: 20120413
  Receipt Date: 20120330
  Transmission Date: 20120825
  Serious: Yes (Other)
  Sender: FDA-Public Use
  Company Number: CHPA2012US006625

PATIENT
  Age: 71 Year
  Sex: Male

DRUGS (1)
  1. EXCEDRIN BACK \+ BODY CAPLETS [Suspect]
     Indication: BACK PAIN
     Dosage: 2 DF, TID
     Route: 048
     Dates: start: 20120301

REACTIONS (1)
  - NEPHROLITHIASIS [None]
